FAERS Safety Report 7087922-0 (Version None)
Quarter: 2010Q4

REPORT INFORMATION
  Report Type: 
  Country: None (occurrence: None)
  Receive Date: 20101108
  Receipt Date: 20101022
  Transmission Date: 20110411
  Serious: Yes (Other)
  Sender: FDA-Public Use
  Company Number: BR-US-EMD SERONO, INC.-7024457

PATIENT
  Sex: Female

DRUGS (12)
  1. REBIF [Suspect]
     Indication: RELAPSING-REMITTING MULTIPLE SCLEROSIS
     Route: 058
  2. CITALOPRAM HYDROBROMIDE [Concomitant]
  3. CLONAZEPAM [Concomitant]
  4. DIMETHICONE [Concomitant]
  5. ESOMEPRAZOLE MAGNESIUM [Concomitant]
  6. CARBAMAZEPINE [Concomitant]
  7. CAPTOPRIL [Concomitant]
  8. PURAN T4 [Concomitant]
  9. BACLOFEN [Concomitant]
  10. SIMVADURA [Concomitant]
  11. TORSILAX [Concomitant]
  12. RAPILAX [Concomitant]

REACTIONS (3)
  - EPILEPSY [None]
  - INJECTION SITE ERYTHEMA [None]
  - MALAISE [None]
